FAERS Safety Report 8239928-3 (Version None)
Quarter: 2012Q1

REPORT INFORMATION
  Report Type: 
  Country: None (occurrence: None)
  Receive Date: 20120328
  Receipt Date: 20120320
  Transmission Date: 20120608
  Serious: Yes (Life-Threatening, Hospitalization, Other)
  Sender: FDA-Public Use
  Company Number: DK-UCBSA-047506

PATIENT
  Age: 61 Year
  Sex: Female

DRUGS (10)
  1. TODOLAC [Concomitant]
     Indication: PAIN
     Dates: start: 20050101
  2. CIMZIA [Suspect]
     Indication: RHEUMATOID ARTHRITIS
     Route: 058
  3. METHOTREXATE [Concomitant]
     Indication: RHEUMATOID ARTHRITIS
     Dosage: 50 MCG/ML ONCE WEEKLY
     Route: 030
     Dates: start: 20090101
  4. VAGIFEM [Concomitant]
     Indication: MUCOSAL DRYNESS
     Dates: start: 20080101
  5. PREDNISOLONE [Concomitant]
  6. VISCOTEARS [Concomitant]
     Indication: DRY EYE
     Dates: start: 20050101
  7. CIMZIA [Suspect]
     Route: 058
     Dates: start: 20111011, end: 20111011
  8. PANTOPRAZOLE SODIUM [Concomitant]
     Dates: start: 20070101
  9. PROPRANOLOL [Concomitant]
     Indication: TREMOR
     Dates: start: 20010101
  10. PINEX [Concomitant]
     Indication: PAIN
     Dates: start: 20010101

REACTIONS (6)
  - PHARYNGEAL OEDEMA [None]
  - SWELLING FACE [None]
  - SWOLLEN TONGUE [None]
  - URTICARIA [None]
  - CHEST DISCOMFORT [None]
  - TYPE I HYPERSENSITIVITY [None]
